FAERS Safety Report 18193641 (Version 1)
Quarter: 2020Q3

REPORT INFORMATION
  Report Type: Spontaneous
  Country: FR (occurrence: FR)
  Receive Date: 20200825
  Receipt Date: 20200825
  Transmission Date: 20201103
  Serious: Yes (Life-Threatening)
  Sender: FDA-Public Use
  Company Number: FR-PFIZER INC-2020325213

PATIENT
  Age: 66 Year
  Sex: Male
  Weight: 65 kg

DRUGS (7)
  1. AVODART [Concomitant]
     Active Substance: DUTASTERIDE
  2. SERETIDE [Concomitant]
     Active Substance: FLUTICASONE PROPIONATE\SALMETEROL XINAFOATE
  3. AZOPT [Concomitant]
     Active Substance: BRINZOLAMIDE
  4. SALBUTAMOL [Concomitant]
     Active Substance: ALBUTEROL
  5. TAZOCILLINE [Suspect]
     Active Substance: PIPERACILLIN SODIUM\TAZOBACTAM SODIUM
     Indication: INFECTION
     Dosage: 12 G, 1X/DAY
     Route: 042
     Dates: start: 20200703, end: 20200709
  6. ALPHAGAN P [Concomitant]
     Active Substance: BRIMONIDINE TARTRATE
  7. OXEOL [Concomitant]
     Active Substance: BAMBUTEROL HYDROCHLORIDE

REACTIONS (3)
  - Anaphylactic shock [Recovered/Resolved]
  - Pain [Recovered/Resolved]
  - Agitation [Recovered/Resolved]

NARRATIVE: CASE EVENT DATE: 20200709
